FAERS Safety Report 21519580 (Version 2)
Quarter: 2022Q4

REPORT INFORMATION
  Report Type: Other
  Country: US (occurrence: None)
  Receive Date: 20221028
  Receipt Date: 20221102
  Transmission Date: 20230113
  Serious: Yes (Death)
  Sender: FDA-Public Use
  Company Number: US-ROCHE-3207433

PATIENT
  Age: 83 Year
  Sex: Male

DRUGS (17)
  1. ZELBORAF [Suspect]
     Active Substance: VEMURAFENIB
     Indication: Colon cancer
     Dosage: TAKE 2 TABLET(S) BY MOUTH EVERY 12 HOURS WITH OR WITHOUT FOOD
     Route: 048
  2. LIDOCAINE [Concomitant]
     Active Substance: LIDOCAINE
  3. DIPHENHYDRAMINE [Concomitant]
     Active Substance: DIPHENHYDRAMINE
  4. BRAFTOVI [Concomitant]
     Active Substance: ENCORAFENIB
  5. CLONAZEPAM [Concomitant]
     Active Substance: CLONAZEPAM
     Route: 048
  6. DOXYCYCLINE HYCLATE [Concomitant]
     Active Substance: DOXYCYCLINE HYCLATE
     Route: 048
  7. FAMOTIDINE [Concomitant]
     Active Substance: FAMOTIDINE
     Route: 048
  8. LIDOCAINE\PRILOCAINE [Concomitant]
     Active Substance: LIDOCAINE\PRILOCAINE
     Route: 061
  9. MEGESTROL [Concomitant]
     Active Substance: MEGESTROL
     Dosage: 400 MG/10ML
  10. METRONIDAZOLE [Concomitant]
     Active Substance: METRONIDAZOLE
     Route: 061
  11. MONTELUKAST [Concomitant]
     Active Substance: MONTELUKAST SODIUM
     Route: 048
  12. PROCLORPERAZINA [Concomitant]
     Dosage: 1-2
     Route: 048
  13. SPIRONOLACTONE [Concomitant]
     Active Substance: SPIRONOLACTONE
     Route: 048
  14. TAMSULOSIN [Concomitant]
     Active Substance: TAMSULOSIN
     Route: 048
  15. GINGER;TURMERIC [Concomitant]
     Dosage: GINGER 100 MG;TURMERIC 50 MG
  16. XYZAL [Concomitant]
     Active Substance: LEVOCETIRIZINE DIHYDROCHLORIDE
  17. VITAMIN D3 [Concomitant]
     Active Substance: CHOLECALCIFEROL
     Route: 048

REACTIONS (2)
  - Off label use [Unknown]
  - Death [Fatal]
